FAERS Safety Report 8085216-8 (Version None)
Quarter: 2012Q1

REPORT INFORMATION
  Report Type: 
  Country: None (occurrence: None)
  Receive Date: 20120128
  Receipt Date: 20110328
  Transmission Date: 20120608
  Serious: No
  Sender: FDA-Public Use
  Company Number: US-ABBOTT-11P-163-0714965-00

PATIENT
  Sex: Male
  Weight: 31.326 kg

DRUGS (1)
  1. HUMIRA [Suspect]
     Indication: CROHN'S DISEASE
     Dates: start: 20110104

REACTIONS (2)
  - SKIN DISCOLOURATION [None]
  - ANAEMIA [None]
